FAERS Safety Report 8911672 (Version 1)
Quarter: 2012Q4

REPORT INFORMATION
  Report Type: 
  Country: US (occurrence: US)
  Receive Date: 20121116
  Receipt Date: 20121116
  Transmission Date: 20130627
  Serious: Yes (Other)
  Sender: FDA-Public Use
  Company Number: US-PFIZER INC-2012286217

PATIENT
  Age: 51 Year
  Sex: Female
  Weight: 86.17 kg

DRUGS (3)
  1. LYRICA [Suspect]
     Indication: PAIN IN LEG
     Dosage: 75 mg, 2x/day
  2. LYRICA [Suspect]
     Dosage: 25 mg, 2x/day
     Dates: end: 2012
  3. NORCO [Concomitant]
     Indication: PAIN IN LEG
     Dosage: [hydrocodone bitartrate 10mg]/[acetaminophen 325mg](4 tablets), UNK
     Route: 048

REACTIONS (4)
  - Bedridden [Recovered/Resolved]
  - Drug ineffective [Unknown]
  - Somnolence [Recovered/Resolved]
  - Fatigue [Recovered/Resolved]
